FAERS Safety Report 15242303 (Version 8)
Quarter: 2019Q4

REPORT INFORMATION
  Report Type: Spontaneous
  Country: CA (occurrence: CA)
  Receive Date: 20180806
  Receipt Date: 20191224
  Transmission Date: 20200122
  Serious: Yes (Hospitalization, Other)
  Sender: FDA-Public Use
  Company Number: CA-ROCHE-2148986

PATIENT
  Age: 67 Year
  Sex: Male

DRUGS (23)
  1. XOLAIR [Suspect]
     Active Substance: OMALIZUMAB
     Indication: ASTHMA
     Route: 058
     Dates: start: 20180626
  2. XOLAIR [Suspect]
     Active Substance: OMALIZUMAB
     Route: 058
     Dates: start: 20180821
  3. XOLAIR [Suspect]
     Active Substance: OMALIZUMAB
     Route: 058
     Dates: start: 20181030
  4. XOLAIR [Suspect]
     Active Substance: OMALIZUMAB
     Route: 058
     Dates: start: 20190124
  5. VALSARTAN. [Suspect]
     Active Substance: VALSARTAN
     Indication: PRODUCT USED FOR UNKNOWN INDICATION
     Route: 065
  6. PANTOPRAZOLE [Concomitant]
     Active Substance: PANTOPRAZOLE
     Indication: GASTROOESOPHAGEAL REFLUX DISEASE
     Route: 048
     Dates: start: 2008
  7. PREDNISONE. [Concomitant]
     Active Substance: PREDNISONE
     Indication: PRODUCT USED FOR UNKNOWN INDICATION
     Dosage: PRN
     Route: 065
  8. TAMSULOSIN [Concomitant]
     Active Substance: TAMSULOSIN
     Indication: PROSTATIC DISORDER
     Route: 048
     Dates: start: 2006
  9. VENTOLIN [Concomitant]
     Active Substance: ALBUTEROL SULFATE
     Indication: ASTHMA
     Dosage: PRN
     Route: 055
     Dates: start: 2008
  10. XOLAIR [Suspect]
     Active Substance: OMALIZUMAB
     Route: 058
     Dates: start: 20190618
  11. CELECOXIB. [Concomitant]
     Active Substance: CELECOXIB
     Indication: ARTHRALGIA
     Route: 048
     Dates: start: 2008
  12. BABY ASPIRIN [Concomitant]
     Active Substance: ASPIRIN
     Indication: PRODUCT USED FOR UNKNOWN INDICATION
     Route: 048
     Dates: start: 2016
  13. REACTINE [CETIRIZINE HYDROCHLORIDE] [Concomitant]
     Active Substance: CETIRIZINE HYDROCHLORIDE
     Indication: SINUS DISORDER
  14. TRAZODONE [Concomitant]
     Active Substance: TRAZODONE HYDROCHLORIDE
     Indication: SLEEP APNOEA SYNDROME
     Dosage: PRN
     Route: 048
     Dates: start: 2008
  15. XOLAIR [Suspect]
     Active Substance: OMALIZUMAB
     Route: 058
     Dates: start: 20180726
  16. XOLAIR [Suspect]
     Active Substance: OMALIZUMAB
     Route: 058
     Dates: start: 20190226
  17. ZENHALE [Concomitant]
     Active Substance: FORMOTEROL FUMARATE\MOMETASONE FUROATE
     Indication: ASTHMA
     Route: 055
     Dates: start: 20180614
  18. TERBINAFINE. [Concomitant]
     Active Substance: TERBINAFINE
     Indication: ANTIFUNGAL TREATMENT
     Route: 048
     Dates: start: 20180527
  19. XOLAIR [Suspect]
     Active Substance: OMALIZUMAB
     Route: 058
     Dates: start: 20181127
  20. VENTOLIN [Concomitant]
     Active Substance: ALBUTEROL SULFATE
     Route: 065
     Dates: start: 201909
  21. REACTINE [CETIRIZINE HYDROCHLORIDE] [Concomitant]
     Active Substance: CETIRIZINE HYDROCHLORIDE
     Indication: HYPERSENSITIVITY
     Route: 048
     Dates: start: 2016
  22. NAPROXEN. [Suspect]
     Active Substance: NAPROXEN
     Indication: BACK PAIN
     Dosage: UNK
     Route: 065
  23. SINGULAIR [Concomitant]
     Active Substance: MONTELUKAST SODIUM
     Indication: ASTHMA
     Route: 048
     Dates: start: 2016

REACTIONS (25)
  - Giardiasis [Recovered/Resolved]
  - Haematochezia [Unknown]
  - Wheezing [Not Recovered/Not Resolved]
  - Back pain [Unknown]
  - Diarrhoea [Recovering/Resolving]
  - Blood pressure increased [Recovering/Resolving]
  - Diverticulitis [Recovered/Resolved]
  - Fall [Unknown]
  - Sciatica [Unknown]
  - Discomfort [Recovered/Resolved]
  - Pneumonia [Unknown]
  - Bruxism [Unknown]
  - Dyspnoea exertional [Not Recovered/Not Resolved]
  - Anxiety [Unknown]
  - Skin laceration [Unknown]
  - Haematoma [Unknown]
  - Abdominal discomfort [Unknown]
  - Weight increased [Unknown]
  - Nasal congestion [Not Recovered/Not Resolved]
  - Forced expiratory volume decreased [Unknown]
  - Bronchial hyperreactivity [Not Recovered/Not Resolved]
  - Cough [Unknown]
  - Nasopharyngitis [Unknown]
  - Insomnia [Unknown]
  - Stress [Unknown]

NARRATIVE: CASE EVENT DATE: 20180626
